FAERS Safety Report 14362594 (Version 1)
Quarter: 2018Q1

REPORT INFORMATION
  Report Type: Spontaneous
  Country: US (occurrence: US)
  Receive Date: 20180105
  Receipt Date: 20180105
  Transmission Date: 20180509
  Serious: No
  Sender: FDA-Public Use
  Company Number: None

PATIENT
  Sex: Male

DRUGS (2)
  1. ATACAND [Suspect]
     Active Substance: CANDESARTAN CILEXETIL
  2. NORVASC [Suspect]
     Active Substance: AMLODIPINE BESYLATE

REACTIONS (2)
  - Drug ineffective [None]
  - Treatment failure [None]
